FAERS Safety Report 9707971 (Version 1)
Quarter: 2013Q4

REPORT INFORMATION
  Report Type: Spontaneous
  Country: AU (occurrence: AU)
  Receive Date: 20131125
  Receipt Date: 20131125
  Transmission Date: 20140711
  Serious: Yes (Other)
  Sender: FDA-Public Use
  Company Number: AU-ROXANE LABORATORIES, INC.-2013-RO-01853RO

PATIENT
  Sex: Male

DRUGS (2)
  1. CYCLOPHOSPHAMIDE TABLETS USP [Suspect]
     Indication: MEDULLOBLASTOMA
  2. CISPLATIN [Suspect]
     Indication: MEDULLOBLASTOMA

REACTIONS (2)
  - Neuropathy peripheral [Unknown]
  - Tinnitus [Unknown]
